FAERS Safety Report 15338204 (Version 1)
Quarter: 2018Q3

REPORT INFORMATION
  Report Type: Spontaneous
  Country: US (occurrence: US)
  Receive Date: 20180831
  Receipt Date: 20180831
  Transmission Date: 20181010
  Serious: Yes (Other)
  Sender: FDA-Public Use
  Company Number: US-BAYER-2018-162562

PATIENT
  Age: 30 Year
  Sex: Female

DRUGS (1)
  1. MIRENA [Suspect]
     Active Substance: LEVONORGESTREL
     Indication: CONTRACEPTION
     Dosage: 20 MCG/24HR, CONT
     Route: 015
     Dates: start: 20081024, end: 20131009

REACTIONS (12)
  - Diplopia [None]
  - Dizziness [None]
  - Anxiety [None]
  - Photosensitivity reaction [None]
  - Hyperacusis [None]
  - Idiopathic intracranial hypertension [None]
  - Hirsutism [None]
  - Optic nerve injury [None]
  - Headache [None]
  - Visual field defect [None]
  - Tinnitus [None]
  - Depression [None]
